FAERS Safety Report 15404459 (Version 1)
Quarter: 2018Q3

REPORT INFORMATION
  Report Type: Spontaneous
  Country: AU (occurrence: AU)
  Receive Date: 20180919
  Receipt Date: 20180919
  Transmission Date: 20181010
  Serious: Yes (Other)
  Sender: FDA-Public Use
  Company Number: AU-SHIRE-AU201834734

PATIENT

DRUGS (1)
  1. VYVANSE [Suspect]
     Active Substance: LISDEXAMFETAMINE DIMESYLATE
     Indication: PRODUCT USED FOR UNKNOWN INDICATION
     Dosage: ABOVE 70 MG PER DAY
     Route: 065

REACTIONS (4)
  - Grandiosity [Unknown]
  - Hallucination, auditory [Unknown]
  - Hypomania [Unknown]
  - Overdose [Unknown]
